FAERS Safety Report 7600528-7 (Version None)
Quarter: 2011Q3

REPORT INFORMATION
  Report Type: 
  Country: None (occurrence: None)
  Receive Date: 20110711
  Receipt Date: 20110704
  Transmission Date: 20111222
  Serious: Yes (Death)
  Sender: FDA-Public Use
  Company Number: CA-ROCHE-767413

PATIENT
  Sex: Male
  Weight: 83 kg

DRUGS (7)
  1. DECADRON [Concomitant]
  2. ZOFRAN [Concomitant]
  3. PANTOPRAZOLE SODIUM [Concomitant]
  4. BEVACIZUMAB [Suspect]
     Indication: GLIOBLASTOMA
     Dosage: FORM: INFUSION
     Route: 042
     Dates: start: 20101125, end: 20110127
  5. DOXITAB [Concomitant]
  6. LOVENOX [Concomitant]
  7. DILANTIN [Concomitant]

REACTIONS (3)
  - DISEASE PROGRESSION [None]
  - GLIOBLASTOMA [None]
  - NEOPLASM PROGRESSION [None]
